FAERS Safety Report 7865592-9 (Version None)
Quarter: 2011Q4

REPORT INFORMATION
  Report Type: 
  Country: None (occurrence: None)
  Receive Date: 20111028
  Receipt Date: 20110120
  Transmission Date: 20120403
  Serious: No
  Sender: FDA-Public Use
  Company Number: US-GLAXOSMITHKLINE-A0907728A

PATIENT
  Age: 72 Year
  Sex: Female

DRUGS (6)
  1. ADVAIR DISKUS 100/50 [Suspect]
     Indication: WHEEZING
     Dosage: 1PUFF IN THE MORNING
     Route: 055
     Dates: start: 20080101
  2. BETIMOL [Concomitant]
  3. MUCINEX [Concomitant]
  4. BLOOD PRESSURE MEDICATION [Concomitant]
     Indication: HYPERTENSION
  5. SYNTHROID [Concomitant]
  6. SINGULAIR [Concomitant]

REACTIONS (1)
  - STOMATITIS [None]
